FAERS Safety Report 17462928 (Version 5)
Quarter: 2020Q2

REPORT INFORMATION
  Report Type: Report from Study
  Country: US (occurrence: US)
  Receive Date: 20200226
  Receipt Date: 20200616
  Transmission Date: 20200713
  Serious: Yes (Hospitalization)
  Sender: FDA-Public Use
  Company Number: US-EISAI MEDICAL RESEARCH-EC-2020-070187

PATIENT
  Age: 72 Year
  Sex: Male

DRUGS (36)
  1. ASPIRIN. [Concomitant]
     Active Substance: ASPIRIN
  2. VITAMIN D3 [Concomitant]
     Active Substance: CHOLECALCIFEROL
  3. CARVEDILOL. [Concomitant]
     Active Substance: CARVEDILOL
  4. AMOXICILLIN CLAVULANATE [Concomitant]
     Active Substance: AMOXICILLIN\CLAVULANIC ACID
  5. LENVIMA [Suspect]
     Active Substance: LENVATINIB
     Indication: HEPATOCELLULAR CARCINOMA
     Route: 048
     Dates: start: 20200208, end: 2020
  6. LEVOFLOXACIN. [Concomitant]
     Active Substance: LEVOFLOXACIN
  7. CEFDINIR. [Concomitant]
     Active Substance: CEFDINIR
  8. CHLORTHALIDONE. [Concomitant]
     Active Substance: CHLORTHALIDONE
  9. LENVIMA [Suspect]
     Active Substance: LENVATINIB
     Route: 048
     Dates: start: 2020, end: 202003
  10. LENVIMA [Suspect]
     Active Substance: LENVATINIB
     Route: 048
     Dates: start: 202004
  11. PROAIR HFA [Concomitant]
     Active Substance: ALBUTEROL SULFATE
  12. ISOSORBIDE MONONITRATE. [Concomitant]
     Active Substance: ISOSORBIDE MONONITRATE
  13. CLINDAMYCIN. [Concomitant]
     Active Substance: CLINDAMYCIN
  14. MULTIVITAMINS [Concomitant]
     Active Substance: VITAMINS
  15. SALINE MIST [Concomitant]
     Active Substance: SODIUM CHLORIDE
  16. MINOCYCLINE [Concomitant]
     Active Substance: MINOCYCLINE HYDROCHLORIDE
  17. PLAVIX [Concomitant]
     Active Substance: CLOPIDOGREL BISULFATE
  18. AZITHROMYCIN ANHYDROUS. [Concomitant]
     Active Substance: AZITHROMYCIN ANHYDROUS
  19. CIPROFLOXACIN. [Concomitant]
     Active Substance: CIPROFLOXACIN
  20. LANSOPRAZOLE. [Concomitant]
     Active Substance: LANSOPRAZOLE
  21. NITROFURANTOIN. [Concomitant]
     Active Substance: NITROFURANTOIN
  22. ATORVASTATIN [Concomitant]
     Active Substance: ATORVASTATIN
  23. MUPIROCIN. [Concomitant]
     Active Substance: MUPIROCIN
  24. HYDROCHLOROTHIAZIDE. [Concomitant]
     Active Substance: HYDROCHLOROTHIAZIDE
  25. RANOLAZINE. [Concomitant]
     Active Substance: RANOLAZINE
  26. PANTOPRAZOLE [Concomitant]
     Active Substance: PANTOPRAZOLE
  27. BACTRIM [Concomitant]
     Active Substance: SULFAMETHOXAZOLE\TRIMETHOPRIM
  28. NITROGLYCERIN. [Concomitant]
     Active Substance: NITROGLYCERIN
  29. CEPHALEXIN. [Concomitant]
     Active Substance: CEPHALEXIN
  30. AMLODIPINE [Concomitant]
     Active Substance: AMLODIPINE BESYLATE
  31. AMIODARONE [Concomitant]
     Active Substance: AMIODARONE
  32. ELIQUIS [Concomitant]
     Active Substance: APIXABAN
  33. DILTIAZEM. [Concomitant]
     Active Substance: DILTIAZEM
  34. PREDNISONE. [Concomitant]
     Active Substance: PREDNISONE
  35. LOSARTAN. [Concomitant]
     Active Substance: LOSARTAN
  36. METHYLPREDNISOLONE. [Concomitant]
     Active Substance: METHYLPREDNISOLONE

REACTIONS (9)
  - Atrial fibrillation [Unknown]
  - Coronavirus infection [Unknown]
  - Pain [Unknown]
  - Nausea [Unknown]
  - Urinary tract infection [Unknown]
  - Blood pressure increased [Unknown]
  - Insomnia [Unknown]
  - Malaise [Unknown]
  - Blood pressure fluctuation [Unknown]

NARRATIVE: CASE EVENT DATE: 202002
